FAERS Safety Report 9651042 (Version 2)
Quarter: 2013Q4

REPORT INFORMATION
  Report Type: Report from Study
  Country: MX (occurrence: MX)
  Receive Date: 20131029
  Receipt Date: 20131029
  Transmission Date: 20140711
  Serious: Yes (Other)
  Sender: FDA-Public Use
  Company Number: PHHY2012MX025853

PATIENT
  Age: 91 Year
  Sex: Female

DRUGS (9)
  1. EXELON PATCH [Suspect]
     Indication: DEMENTIA ALZHEIMER^S TYPE
     Dosage: 9.5 MG, QD PATCH 10 (CM2)
     Route: 062
     Dates: start: 20120229, end: 20120322
  2. EXELON PATCH [Suspect]
     Dosage: 4.6 MG, UNK PATCH 5 (CM2)
     Route: 062
  3. EXELON PATCH [Suspect]
     Dosage: 9.5 MG, DAILY (PATCH 10 CM2)
     Route: 062
  4. HYDREA [Concomitant]
     Indication: PLATELET COUNT INCREASED
     Dosage: 1 DF, QD
     Dates: start: 2010
  5. LOSARTAN [Concomitant]
     Indication: HYPERTENSION
     Dosage: 2 DF, QD
     Dates: start: 2008
  6. METOPROLOL [Concomitant]
     Indication: HYPERTENSION
     Dosage: 1 DF, QD
     Dates: start: 2009
  7. RIVOTRIL [Concomitant]
     Indication: RESTLESSNESS
     Dosage: 7 DRP, QD
     Dates: start: 2010
  8. ASPIRIN PROTECT [Concomitant]
     Indication: COAGULOPATHY
     Dosage: 1 UKN, DAILY
     Dates: start: 2008
  9. LAMISIL [Concomitant]
     Indication: HALLUCINATION
     Dosage: 2 DF, QD
     Dates: start: 201104

REACTIONS (7)
  - Coagulopathy [Recovered/Resolved]
  - Mood altered [Recovered/Resolved]
  - Sleep disorder [Unknown]
  - Headache [Recovered/Resolved]
  - Dizziness [Recovered/Resolved]
  - Dementia Alzheimer^s type [Unknown]
  - Cognitive disorder [Unknown]
